FAERS Safety Report 9472708 (Version 1)
Quarter: 2013Q3

REPORT INFORMATION
  Report Type: Spontaneous
  Country: US (occurrence: None)
  Receive Date: 20130821
  Receipt Date: 20130821
  Transmission Date: 20140515
  Serious: Yes (Life-Threatening, Hospitalization)
  Sender: FDA-Public Use
  Company Number: None

PATIENT
  Age: 66 Year
  Sex: Male
  Weight: 63.2 kg

DRUGS (2)
  1. PREDNISONE [Suspect]
     Indication: POLYMYALGIA RHEUMATICA
     Route: 048
     Dates: start: 20130404, end: 20130501
  2. IBUPROFEN [Suspect]
     Indication: PAIN
     Route: 048
     Dates: start: 20130501, end: 20130701

REACTIONS (6)
  - Anaemia [None]
  - Gastric haemorrhage [None]
  - Hypotension [None]
  - Hypoxia [None]
  - Gastric ulcer [None]
  - Gastritis [None]
